FAERS Safety Report 13508557 (Version 1)
Quarter: 2017Q2

REPORT INFORMATION
  Report Type: Spontaneous
  Country: US (occurrence: US)
  Receive Date: 20170503
  Receipt Date: 20170503
  Transmission Date: 20170830
  Serious: Yes (Hospitalization, Other)
  Sender: FDA-Public Use
  Company Number: US-PFIZER INC-2017187103

PATIENT
  Age: 31 Year
  Sex: Female

DRUGS (2)
  1. CARBOPROST [Concomitant]
     Active Substance: CARBOPROST
     Indication: UTERINE ATONY
     Dosage: UNK (THREE DOSES)
  2. MAGNESIUM SULFATE. [Suspect]
     Active Substance: MAGNESIUM SULFATE
     Indication: HYPERTENSION
     Dosage: UNK (LOADING DOSE)

REACTIONS (1)
  - Pulmonary oedema [Recovered/Resolved]
